FAERS Safety Report 8119813-8 (Version None)
Quarter: 2012Q1

REPORT INFORMATION
  Report Type: 
  Country: None (occurrence: None)
  Receive Date: 20120206
  Receipt Date: 20120206
  Transmission Date: 20120608
  Serious: No
  Sender: FDA-Public Use
  Company Number: None

PATIENT
  Sex: Female
  Weight: 44.4525 kg

DRUGS (1)
  1. GILENYA [Suspect]
     Indication: MULTIPLE SCLEROSIS
     Dosage: 1 CAPSULE DAILY
     Dates: start: 20110308, end: 20110917

REACTIONS (2)
  - DECREASED APPETITE [None]
  - WEIGHT DECREASED [None]
